FAERS Safety Report 6329168-7 (Version None)
Quarter: 2009Q3

REPORT INFORMATION
  Report Type: 
  Country: None (occurrence: None)
  Receive Date: 20090826
  Receipt Date: 20090326
  Transmission Date: 20100115
  Serious: No
  Sender: FDA-Public Use
  Company Number: US-ASTRAZENECA-2009UW07734

PATIENT
  Age: 71 Year
  Sex: Male
  Weight: 94.3 kg

DRUGS (7)
  1. IRESSA [Suspect]
     Route: 048
  2. PRAVASTATIN [Concomitant]
  3. VERAPAMIL [Concomitant]
  4. FUROSEMIDE [Concomitant]
  5. SINGULAIR [Concomitant]
  6. ALBUTEROL [Concomitant]
  7. COMBIVENT [Concomitant]

REACTIONS (3)
  - EYE DISCHARGE [None]
  - EYELID EXFOLIATION [None]
  - EYELID IRRITATION [None]
